FAERS Safety Report 4621778-8 (Version None)
Quarter: 2005Q1

REPORT INFORMATION
  Report Type: 
  Country: None (occurrence: None)
  Receive Date: 20050329
  Receipt Date: 20050225
  Transmission Date: 20050727
  Serious: Yes (Life-Threatening, Hospitalization)
  Sender: FDA-Public Use
  Company Number: PHBS2005JP02908

PATIENT
  Age: 50 Year
  Sex: Male

DRUGS (14)
  1. STARSIS [Suspect]
     Indication: DIABETES MELLITUS
     Dosage: 90 MG, TID
     Route: 048
     Dates: start: 20040901, end: 20050219
  2. VASOLAN [Concomitant]
     Indication: ATRIAL FIBRILLATION
     Dosage: 80 MG, UNK
     Dates: start: 20040901
  3. LIPITOR [Concomitant]
  4. MUCOSTA [Concomitant]
  5. OMEPRAL [Concomitant]
  6. WARFARIN SODIUM [Suspect]
     Indication: ATRIAL FIBRILLATION
     Dosage: 2 MG, QD
     Route: 048
     Dates: start: 20040901
  7. ZANTAC [Suspect]
     Indication: GASTRITIS
     Dosage: 300 MG, QD
     Route: 048
     Dates: start: 20040901
  8. LASIX [Suspect]
     Indication: HYPERTENSION
     Dosage: 20 MG, QD
     Route: 048
     Dates: start: 20040901
  9. METHIMAZOLE [Concomitant]
     Indication: HYPERTHYROIDISM
     Dosage: 25 MG, UNK
     Dates: start: 20040901
  10. ALDACTONE [Concomitant]
     Indication: CARDIAC FAILURE
     Dosage: 25 MG, UNK
     Dates: start: 20040901
  11. SALOBEL [Concomitant]
     Indication: HYPERURICAEMIA
     Dosage: 100 MG, UNK
     Dates: start: 20040901
  12. PLETAL [Concomitant]
     Indication: MYOCARDIAL ISCHAEMIA
     Dosage: 200 MG, UNK
     Dates: start: 20040901
  13. MAINTATE [Concomitant]
     Indication: HYPERTENSION
     Dosage: 5 MG, UNK
     Dates: start: 20040901
  14. NU-LOTAN [Concomitant]
     Indication: HYPERTENSION
     Dosage: 50 MG, UNK
     Dates: start: 20040901

REACTIONS (8)
  - ACIDOSIS [None]
  - BLOOD CREATININE INCREASED [None]
  - BLOOD UREA INCREASED [None]
  - DEHYDRATION [None]
  - DIARRHOEA [None]
  - HYPOGLYCAEMIA [None]
  - RENAL FAILURE [None]
  - RENAL IMPAIRMENT [None]
